FAERS Safety Report 20250894 (Version 1)
Quarter: 2021Q4

REPORT INFORMATION
  Report Type: Spontaneous
  Country: US (occurrence: None)
  Receive Date: 20211229
  Receipt Date: 20211229
  Transmission Date: 20220303
  Serious: Yes (Death, Hospitalization)
  Sender: FDA-Public Use
  Company Number: None

PATIENT
  Age: 56 Year
  Sex: Female
  Weight: 110 kg

DRUGS (12)
  1. REGEN-COV [Suspect]
     Active Substance: CASIRIVIMAB\IMDEVIMAB
     Indication: COVID-19
     Dosage: OTHER FREQUENCY : ONCE;?
     Route: 058
  2. CLONAZEPAM [Concomitant]
     Active Substance: CLONAZEPAM
  3. DEXAMETHASONE [Concomitant]
     Active Substance: DEXAMETHASONE
  4. DOXYCYCLINE [Concomitant]
     Active Substance: DOXYCYCLINE
  5. ENOXAPARIN [Concomitant]
     Active Substance: ENOXAPARIN
  6. HEPARIN [Concomitant]
     Active Substance: HEPARIN SODIUM
  7. INSULIN GLARGINE [Concomitant]
     Active Substance: INSULIN GLARGINE
  8. LEVOFLOXACIN [Concomitant]
     Active Substance: LEVOFLOXACIN
  9. LINEZOLID [Concomitant]
     Active Substance: LINEZOLID
  10. PIPERACILLIN AND TAZOBACTAM [Concomitant]
     Active Substance: PIPERACILLIN SODIUM\TAZOBACTAM SODIUM
  11. REMDESIVIR [Concomitant]
     Active Substance: REMDESIVIR
  12. unknown chemo drug [Concomitant]

REACTIONS (1)
  - Respiratory distress [None]

NARRATIVE: CASE EVENT DATE: 20211102
